FAERS Safety Report 15014520 (Version 1)
Quarter: 2018Q2

REPORT INFORMATION
  Report Type: Spontaneous
  Country: FR (occurrence: FR)
  Receive Date: 20180615
  Receipt Date: 20180615
  Transmission Date: 20180711
  Serious: Yes (Hospitalization)
  Sender: FDA-Public Use
  Company Number: FR-TEVA-2018-FR-907467

PATIENT
  Age: 75 Year
  Sex: Female
  Weight: 73.9 kg

DRUGS (3)
  1. ELIQUIS [Suspect]
     Active Substance: APIXABAN
     Indication: ATRIAL FIBRILLATION
     Dosage: 10 MILLIGRAM DAILY;
     Route: 048
     Dates: start: 20180125, end: 20180212
  2. LASILIX 40 MG, COMPRIM? S?CABLE [Suspect]
     Active Substance: FUROSEMIDE
     Indication: ACUTE KIDNEY INJURY
     Dosage: 40 MILLIGRAM DAILY;
     Route: 048
     Dates: start: 20180125, end: 20180213
  3. BISOPROLOL (FUMARATE ACIDE DE) [Suspect]
     Active Substance: BISOPROLOL FUMARATE
     Indication: MYOCARDIAL ISCHAEMIA
     Dosage: 10 MILLIGRAM DAILY;
     Route: 048
     Dates: start: 20180125, end: 20180212

REACTIONS (4)
  - Eosinophilia [Recovered/Resolved]
  - Eczema [Recovered/Resolved]
  - Rash [Recovered/Resolved]
  - Rash pruritic [Recovered/Resolved]

NARRATIVE: CASE EVENT DATE: 20180128
